FAERS Safety Report 16267316 (Version 19)
Quarter: 2024Q2

REPORT INFORMATION
  Report Type: Spontaneous
  Country: CA (occurrence: CA)
  Receive Date: 20190502
  Receipt Date: 20240502
  Transmission Date: 20240715
  Serious: Yes (Other)
  Sender: FDA-Public Use
  Company Number: CA-HIKMA PHARMACEUTICALS CO. LTD-2017CA014557

PATIENT

DRUGS (39)
  1. INFLECTRA [Suspect]
     Active Substance: INFLIXIMAB-DYYB
     Indication: Crohn^s disease
     Dosage: 5 MG/KG (347.5 MG), AT 0, 2, 6, THEN EVERY 8 WEEKS
     Route: 042
     Dates: start: 20170925
  2. INFLECTRA [Suspect]
     Active Substance: INFLIXIMAB-DYYB
     Dosage: 10 MG/KG EVERY 6 WEEKS
     Route: 042
     Dates: start: 20170925, end: 20191004
  3. INFLECTRA [Suspect]
     Active Substance: INFLIXIMAB-DYYB
     Dosage: 5 MG/KG, AT 0, 2, 6, THEN EVERY 8 WEEKS
     Route: 042
     Dates: start: 20180104
  4. INFLECTRA [Suspect]
     Active Substance: INFLIXIMAB-DYYB
     Dosage: 5 MG/KG,AT 0, 2, 6, THEN EVERY 8 WEEKS
     Route: 042
     Dates: start: 20180301
  5. INFLECTRA [Suspect]
     Active Substance: INFLIXIMAB-DYYB
     Dosage: 5 MG/KG, AT 0, 2, 6, THEN EVERY 8 WEEKS
     Route: 042
     Dates: start: 20180430
  6. INFLECTRA [Suspect]
     Active Substance: INFLIXIMAB-DYYB
     Dosage: 5 MG/KG, EVERY 6 WEEKS
     Route: 042
     Dates: start: 20180613, end: 20180613
  7. INFLECTRA [Suspect]
     Active Substance: INFLIXIMAB-DYYB
     Dosage: 10 MG/KG, EVERY 6 WEEKS
     Route: 042
     Dates: start: 20180725
  8. INFLECTRA [Suspect]
     Active Substance: INFLIXIMAB-DYYB
     Dosage: 10 MG/KG EVERY 6 WEEKS
     Route: 042
     Dates: start: 20180725
  9. INFLECTRA [Suspect]
     Active Substance: INFLIXIMAB-DYYB
     Dosage: 10 MG/KG, EVERY 6 WEEKS
     Route: 042
     Dates: start: 20180907
  10. INFLECTRA [Suspect]
     Active Substance: INFLIXIMAB-DYYB
     Dosage: 5 MG/KG, EVERY 8 WEEKS TO ROUND DOWN IF DOSE= } 50 MG AND TO ROUND UP IF DOSE = { 50 MG
     Route: 042
     Dates: start: 20181029
  11. INFLECTRA [Suspect]
     Active Substance: INFLIXIMAB-DYYB
     Dosage: 5 MG/KG, EVERY 8 WEEKS TO ROUND DOWN IF DOSE= } 50 MG AND TO ROUND UP IF DOSE = { 50 MG
     Route: 042
     Dates: start: 20181228
  12. INFLECTRA [Suspect]
     Active Substance: INFLIXIMAB-DYYB
     Dosage: 5 MG/KG, EVERY 8 WEEKS
     Route: 042
     Dates: start: 20190222
  13. INFLECTRA [Suspect]
     Active Substance: INFLIXIMAB-DYYB
     Dosage: 5 MG/KG, EVERY 8 WEEKS
     Route: 042
     Dates: start: 20190418
  14. INFLECTRA [Suspect]
     Active Substance: INFLIXIMAB-DYYB
     Dosage: 5 MG/KG, EVERY 8 WEEKS
     Route: 042
     Dates: start: 20190615
  15. INFLECTRA [Suspect]
     Active Substance: INFLIXIMAB-DYYB
     Dosage: 5 MG/KG, EVERY 8 WEEKS, ROUND DOWN IF DOSING IS {= 50
     Route: 042
     Dates: start: 20190810
  16. INFLECTRA [Suspect]
     Active Substance: INFLIXIMAB-DYYB
     Dosage: 5 MG/KG, EVERY 8 WEEKS
     Route: 042
     Dates: start: 20191004
  17. INFLECTRA [Suspect]
     Active Substance: INFLIXIMAB-DYYB
     Dosage: 5 MG/KG, EVERY 8 WEEKS
     Route: 042
     Dates: start: 20191004
  18. INFLECTRA [Suspect]
     Active Substance: INFLIXIMAB-DYYB
     Dosage: 5 MG/KG, EVERY 8 WEEKS (WEEK 0,2,6 THEN Q 8 WEEKS )
     Route: 042
     Dates: start: 20230203
  19. INFLECTRA [Suspect]
     Active Substance: INFLIXIMAB-DYYB
     Dosage: 5 MG/KG, EVERY 8 WEEKS (WEEK 0,2,6 THEN Q 8 WEEKS )
     Route: 042
     Dates: start: 20230203, end: 20230511
  20. INFLECTRA [Suspect]
     Active Substance: INFLIXIMAB-DYYB
     Dosage: 5 MG/KG, EVERY 8 WEEKS
     Route: 042
     Dates: start: 20230216
  21. INFLECTRA [Suspect]
     Active Substance: INFLIXIMAB-DYYB
     Dosage: 5 MG/KG, EVERY 8 WEEKS
     Route: 042
     Dates: start: 20230316
  22. INFLECTRA [Suspect]
     Active Substance: INFLIXIMAB-DYYB
     Dosage: 5 MG/KG,EVERY 8 WEEKS
     Route: 042
     Dates: start: 20230511
  23. INFLECTRA [Suspect]
     Active Substance: INFLIXIMAB-DYYB
     Dosage: 10 MG/KG,EVERY 6 WEEKS, (810MG AFTER 6 WEEKS)
     Route: 042
     Dates: start: 20230622
  24. INFLECTRA [Suspect]
     Active Substance: INFLIXIMAB-DYYB
     Dosage: 10 MG/KG,EVERY 6 WEEKS, (810MG AFTER 6 WEEKS)
     Route: 042
     Dates: start: 20230801
  25. INFLECTRA [Suspect]
     Active Substance: INFLIXIMAB-DYYB
     Dosage: 830 MG, (10MG/KG), EVERY 6 WEEKS
     Route: 042
     Dates: start: 20230912
  26. INFLECTRA [Suspect]
     Active Substance: INFLIXIMAB-DYYB
     Dosage: 830 MG, (10MG/KG), EVERY 6 WEEKS
     Route: 042
     Dates: start: 20231205
  27. INFLECTRA [Suspect]
     Active Substance: INFLIXIMAB-DYYB
     Dosage: (10MG/KG), EVERY 6 WEEKS (600 MG, 7.5 MG/KG EVERY 6 WEEKS)
     Route: 042
     Dates: start: 20240118
  28. INFLECTRA [Suspect]
     Active Substance: INFLIXIMAB-DYYB
     Dosage: (10MG/KG), EVERY 6 WEEKS (600 MG, 7.5 MG/KG EVERY 6 WEEKS)
     Route: 042
     Dates: start: 20240118
  29. INFLECTRA [Suspect]
     Active Substance: INFLIXIMAB-DYYB
     Dosage: (10MG/KG), EVERY 6 WEEKS (600 MG, 7.5 MG/KG EVERY 6 WEEKS)
     Route: 042
     Dates: start: 20240118
  30. INFLECTRA [Suspect]
     Active Substance: INFLIXIMAB-DYYB
     Dosage: (10MG/KG), EVERY 6 WEEKS (700MG AFTER 5 WEEKS AND 6 DAYS)
     Route: 042
     Dates: start: 20240228
  31. INFLECTRA [Suspect]
     Active Substance: INFLIXIMAB-DYYB
     Dosage: 10 MG/KG, EVERY 6 WEEKS
     Route: 042
     Dates: start: 20240416
  32. CALCIUM [Concomitant]
     Active Substance: CALCIUM
     Dosage: UNK
  33. CORTISONE [Concomitant]
     Active Substance: CORTISONE
     Dosage: UNK
  34. CLONAZEPAM [Concomitant]
     Active Substance: CLONAZEPAM
     Dosage: UNK
  35. LOPERAMIDE [Concomitant]
     Active Substance: LOPERAMIDE
     Dosage: AS NEEDED
  36. PREDNISONE [Concomitant]
     Active Substance: PREDNISONE
     Dosage: 40 MG, UNK
  37. PREDNISONE [Concomitant]
     Active Substance: PREDNISONE
     Dosage: 15 MG, UNK
     Dates: start: 20171102
  38. VITAMIN D [Concomitant]
     Active Substance: VITAMIN D NOS
     Dosage: UNK
  39. ZOPICLONE [Concomitant]
     Active Substance: ZOPICLONE
     Dosage: 5 MG, HS (AT BEDTIME)

REACTIONS (50)
  - Syncope [Unknown]
  - Fatigue [Not Recovered/Not Resolved]
  - Asthenia [Not Recovered/Not Resolved]
  - Condition aggravated [Not Recovered/Not Resolved]
  - Therapeutic product effect incomplete [Unknown]
  - Drug level below therapeutic [Unknown]
  - Condition aggravated [Recovered/Resolved]
  - Condition aggravated [Recovered/Resolved]
  - Fatigue [Not Recovered/Not Resolved]
  - Abdominal pain upper [Not Recovered/Not Resolved]
  - Malaise [Not Recovered/Not Resolved]
  - Loss of personal independence in daily activities [Not Recovered/Not Resolved]
  - Anxiety [Not Recovered/Not Resolved]
  - Acne [Not Recovered/Not Resolved]
  - Skin plaque [Unknown]
  - Haematuria [Recovered/Resolved]
  - Dysuria [Unknown]
  - Nasal congestion [Unknown]
  - Bone pain [Unknown]
  - Hypoaesthesia [Unknown]
  - Muscular weakness [Not Recovered/Not Resolved]
  - Rash papular [Unknown]
  - Rhinitis [Recovered/Resolved]
  - Torticollis [Not Recovered/Not Resolved]
  - Pain in extremity [Unknown]
  - Body temperature fluctuation [Unknown]
  - Blood pressure decreased [Unknown]
  - Infusion site inflammation [Recovered/Resolved]
  - Infusion site swelling [Recovered/Resolved]
  - Pain in jaw [Unknown]
  - Infusion site rash [Recovered/Resolved]
  - Infusion site mass [Recovered/Resolved]
  - Rosacea [Not Recovered/Not Resolved]
  - Muscle spasms [Unknown]
  - Mobility decreased [Not Recovered/Not Resolved]
  - Eczema [Not Recovered/Not Resolved]
  - Nasopharyngitis [Unknown]
  - Psoriasis [Not Recovered/Not Resolved]
  - Skin lesion [Not Recovered/Not Resolved]
  - Dermatitis allergic [Unknown]
  - Chest discomfort [Recovered/Resolved]
  - Dyspnoea [Recovered/Resolved]
  - Nasopharyngitis [Recovering/Resolving]
  - Cough [Recovering/Resolving]
  - Vomiting [Not Recovered/Not Resolved]
  - Arthralgia [Recovered/Resolved]
  - Off label use [Unknown]
  - Off label use [Unknown]
  - Intentional product use issue [Unknown]
  - Incorrect dose administered [Unknown]

NARRATIVE: CASE EVENT DATE: 20170101
